FAERS Safety Report 24460706 (Version 2)
Quarter: 2024Q4

REPORT INFORMATION
  Report Type: Other
  Country: IN (occurrence: IN)
  Receive Date: 20241018
  Receipt Date: 20241030
  Transmission Date: 20250114
  Serious: Yes (Other)
  Sender: ALVOGEN
  Company Number: IN-ALVOGEN-2024095657

PATIENT
  Age: 27 Year
  Sex: Female

DRUGS (1)
  1. LEVOTHYROXINE [Suspect]
     Active Substance: LEVOTHYROXINE
     Indication: Hypothyroidism
     Dosage: DAILY FOR THE LAST FOUR YEARS

REACTIONS (1)
  - Lupus-like syndrome [Recovering/Resolving]
